FAERS Safety Report 7635439-4 (Version None)
Quarter: 2011Q3

REPORT INFORMATION
  Report Type: 
  Country: None (occurrence: None)
  Receive Date: 20110726
  Receipt Date: 20110718
  Transmission Date: 20111222
  Serious: Yes (Life-Threatening, Hospitalization)
  Sender: FDA-Public Use
  Company Number: FR-ELI_LILLY_AND_COMPANY-FR201107004420

PATIENT
  Sex: Male

DRUGS (3)
  1. CARBOPLATIN [Concomitant]
     Indication: MESOTHELIOMA MALIGNANT
     Dosage: 240 MG, UNK
     Route: 042
     Dates: start: 20110523
  2. CISPLATIN [Concomitant]
     Indication: MESOTHELIOMA MALIGNANT
     Dosage: 75 MG/M2, ON DAY1 OF 21DAY CYCLE
     Route: 042
     Dates: start: 20110331, end: 20110421
  3. ALIMTA [Suspect]
     Indication: MESOTHELIOMA MALIGNANT
     Dosage: 575 MG, ON DAY1 OF 21DAY CYCLE
     Route: 042
     Dates: start: 20110331, end: 20110523

REACTIONS (6)
  - CREATININE URINE INCREASED [None]
  - CREATININE RENAL CLEARANCE DECREASED [None]
  - SEPSIS [None]
  - GENERAL PHYSICAL HEALTH DETERIORATION [None]
  - FEBRILE BONE MARROW APLASIA [None]
  - PNEUMONIA KLEBSIELLA [None]
